FAERS Safety Report 6709347-7 (Version None)
Quarter: 2010Q2

REPORT INFORMATION
  Report Type: 
  Country: None (occurrence: None)
  Receive Date: 20100503
  Receipt Date: 20100503
  Transmission Date: 20101027
  Serious: Yes (Hospitalization)
  Sender: FDA-Public Use
  Company Number: None

PATIENT
  Age: 10 Year
  Sex: Male
  Weight: 43.0917 kg

DRUGS (1)
  1. CHILDREN'S MOTRIN [Suspect]
     Indication: PYREXIA
     Dosage: 3 TEASPOON 6-8 HRS, {= 4X DAY PO
     Route: 048
     Dates: start: 20100207, end: 20100214

REACTIONS (2)
  - APPENDICITIS PERFORATED [None]
  - PRODUCT QUALITY ISSUE [None]
